FAERS Safety Report 10230881 (Version 4)
Quarter: 2014Q3

REPORT INFORMATION
  Report Type: Report from Study
  Country: DE (occurrence: DE)
  Receive Date: 20140611
  Receipt Date: 20140723
  Transmission Date: 20150326
  Serious: Yes (Other)
  Sender: FDA-Public Use
  Company Number: DE-INCYTE CORPORATION-2014IN001520

PATIENT
  Sex: Female

DRUGS (1)
  1. INC424 [Suspect]
     Active Substance: RUXOLITINIB
     Indication: MYELOFIBROSIS
     Dosage: 15 MG, BID
     Route: 048
     Dates: start: 201108

REACTIONS (2)
  - Neuroendocrine carcinoma of the skin [Recovering/Resolving]
  - Second primary malignancy [Unknown]

NARRATIVE: CASE EVENT DATE: 201404
